FAERS Safety Report 6944515-0 (Version None)
Quarter: 2010Q3

REPORT INFORMATION
  Report Type: 
  Country: None (occurrence: None)
  Receive Date: 20100827
  Receipt Date: 20100820
  Transmission Date: 20110219
  Serious: Yes (Other)
  Sender: FDA-Public Use
  Company Number: MX-PFIZER INC-2010105814

PATIENT
  Age: 80 Year
  Sex: Male
  Weight: 60 kg

DRUGS (5)
  1. TAFIL [Suspect]
     Indication: ANXIETY
     Dosage: 0.25 MG, 1X/DAY
     Route: 048
     Dates: start: 19900101
  2. TAFIL [Suspect]
     Indication: INSOMNIA
  3. ENALAPRIL MALEATE [Concomitant]
     Dosage: UNK
  4. ACETYLSALICYLIC ACID [Concomitant]
     Dosage: UNK
  5. SENNOSIDE A+B [Concomitant]
     Dosage: UNK

REACTIONS (2)
  - CYANOSIS [None]
  - HYPERCAPNIA [None]
